FAERS Safety Report 7248033-4 (Version None)
Quarter: 2011Q1

REPORT INFORMATION
  Report Type: 
  Country: None (occurrence: None)
  Receive Date: 20110127
  Receipt Date: 20110124
  Transmission Date: 20110831
  Serious: Yes (Hospitalization, Other)
  Sender: FDA-Public Use
  Company Number: SE-PFIZER INC-2011016090

PATIENT
  Age: 34 Year
  Sex: Male

DRUGS (3)
  1. SALAZOPYRIN [Suspect]
     Indication: ENTHESOPATHY
     Dosage: UNK
     Route: 048
     Dates: start: 20100914, end: 20101108
  2. PREDNISOLONE [Concomitant]
     Dosage: UNK
  3. CALCICHEW-D3 [Concomitant]
     Dosage: UNK

REACTIONS (3)
  - AGRANULOCYTOSIS [None]
  - SEPSIS [None]
  - B-CELL LYMPHOMA [None]
